FAERS Safety Report 11084061 (Version 1)
Quarter: 2015Q2

REPORT INFORMATION
  Report Type: Report from Study
  Country: IT (occurrence: IT)
  Receive Date: 20150501
  Receipt Date: 20150501
  Transmission Date: 20150821
  Serious: Yes (Hospitalization)
  Sender: FDA-Public Use
  Company Number: IT-AMGEN-2013-0450

PATIENT
  Age: 75 Year
  Sex: Female
  Weight: 49 kg

DRUGS (63)
  1. LENALIDOMIDE [Suspect]
     Active Substance: LENALIDOMIDE
     Dosage: FREQUENCY: 21 EVERY 28 DAYS; FREQ. TEXT: DAYS 1-21, EVERY 28 DAYS
     Route: 048
     Dates: start: 20121129, end: 20130116
  2. CACIT D3 [Concomitant]
     Active Substance: CALCIUM\CHOLECALCIFEROL
     Dosage: DAILY DOSE: SACHET?
     Route: 048
     Dates: start: 20130228, end: 20130307
  3. CLYSTER [Concomitant]
     Indication: CONSTIPATION PROPHYLAXIS
     Route: 054
     Dates: start: 20121107
  4. PURSENNID [Concomitant]
     Active Substance: SENNOSIDES A AND B
     Route: 048
     Dates: start: 20121018
  5. DEXAMETHASONE. [Suspect]
     Active Substance: DEXAMETHASONE
     Dosage: FREQUENCY: 4 EVERY 28 DAYS; FREQ. TEXT: DAYS 1, 8, 15, 22, EVERY 28 DAYS
     Route: 065
     Dates: start: 20111227, end: 20120215
  6. DEXAMETHASONE. [Suspect]
     Active Substance: DEXAMETHASONE
     Dosage: FREQUENCY: 4 EVERY 28 DAYS; FREQ. TEXT: DAYS 1, 8, 15, 22, EVERY 28 DAYS
     Route: 065
     Dates: start: 20120920, end: 20121031
  7. NEXIUM [Concomitant]
     Active Substance: ESOMEPRAZOLE MAGNESIUM
     Indication: VOMITING
  8. ZEFFIX [Concomitant]
     Active Substance: LAMIVUDINE
     Indication: ANTIVIRAL PROPHYLAXIS
     Route: 048
     Dates: start: 20111205
  9. SALINE SOLUTION + KCL [Concomitant]
     Indication: HYPOKALAEMIA
     Dosage: DAILY DOSE: 500+20 MEQ ML?
     Route: 042
     Dates: start: 20130228, end: 20130228
  10. BRONCOVALEAS [Concomitant]
     Active Substance: ALBUTEROL
     Indication: BRONCHITIS
     Route: 055
     Dates: start: 20130310, end: 20130310
  11. CARFILZOMIB [Suspect]
     Active Substance: CARFILZOMIB
     Dosage: FREQUENCY: 6 EVERY 28 DAYS; FREQ. TEXT: DAYS 1, 2, 8, 9, 15, 16 EVERY 28 DAYS
     Route: 042
     Dates: start: 20111227, end: 20120906
  12. CARFILZOMIB [Suspect]
     Active Substance: CARFILZOMIB
     Dosage: FREQUENCY: 4 EVERY 28 DAYS; FREQ. TEXT: DAYS 1, 2, 15, 16 EVERY 28 DAYS
     Route: 042
     Dates: start: 20121129, end: 20121228
  13. CARFILZOMIB [Suspect]
     Active Substance: CARFILZOMIB
     Dosage: FREQUENCY: 4 EVERY 28 DAYS; FREQ. TEXT: DAYS 1, 2, 15, 16 EVERY 28 DAYS
     Route: 042
     Dates: start: 20130214, end: 20130215
  14. LENALIDOMIDE [Suspect]
     Active Substance: LENALIDOMIDE
     Dosage: FREQUENCY: 21 EVERY 28 DAYS; FREQ. TEXT: DAYS 1-21, EVERY 28 DAYS
     Route: 048
     Dates: start: 20111207, end: 20120422
  15. DEXAMETHASONE. [Suspect]
     Active Substance: DEXAMETHASONE
     Dosage: FREQUENCY: 4 EVERY 28 DAYS; FREQ. TEXT: DAYS 1, 8, 15, 22, EVERY 28 DAYS
     Route: 065
     Dates: start: 20120221, end: 20120502
  16. DEXAMETHASONE. [Suspect]
     Active Substance: DEXAMETHASONE
     Dosage: FREQUENCY: 4 EVERY 28 DAYS; FREQ. TEXT: DAYS 1, 8, 15, 22, EVERY 28 DAYS
     Route: 065
     Dates: start: 20121129, end: 20130221
  17. CONGESCOR [Concomitant]
     Active Substance: BISOPROLOL
     Indication: PROPHYLAXIS
     Route: 048
     Dates: start: 20121101
  18. EUTIROX [Concomitant]
     Active Substance: LEVOTHYROXINE SODIUM
     Indication: HYPOTHYROIDISM
     Route: 048
     Dates: start: 20091007
  19. KCL RETARD [Concomitant]
     Active Substance: POTASSIUM CHLORIDE
     Indication: PROPHYLAXIS
     Route: 048
     Dates: start: 20130123, end: 20130228
  20. KCL RETARD [Concomitant]
     Active Substance: POTASSIUM CHLORIDE
     Route: 048
     Dates: start: 20130228
  21. TACHIPIRINA [Concomitant]
     Active Substance: ACETAMINOPHEN
     Indication: PAIN PROPHYLAXIS
     Route: 048
     Dates: start: 20091006
  22. LENALIDOMIDE [Suspect]
     Active Substance: LENALIDOMIDE
     Dosage: FREQUENCY: 21 EVERY 28 DAYS; FREQ. TEXT: DAYS 1-21, EVERY 28 DAYS
     Route: 048
     Dates: start: 20120510, end: 20120510
  23. LENALIDOMIDE [Suspect]
     Active Substance: LENALIDOMIDE
     Dosage: FREQUENCY: 21 EVERY 28 DAYS; FREQ. TEXT: DAYS 1-21, EVERY 28 DAYS
     Route: 048
     Dates: start: 20120613, end: 20120920
  24. CARDIOASPIRIN [Concomitant]
     Active Substance: ASPIRIN
     Indication: ANTIPLATELET THERAPY
  25. MOVICOL [Concomitant]
     Active Substance: POLYETHYLENE GLYCOL 3350\POTASSIUM CHLORIDE\SODIUM BICARBONATE\SODIUM CHLORIDE
     Route: 048
     Dates: start: 20091006
  26. PLASIL [Concomitant]
     Active Substance: METOCLOPRAMIDE HYDROCHLORIDE
     Indication: PROPHYLAXIS OF NAUSEA AND VOMITING
     Route: 048
     Dates: start: 20111125
  27. TRIMETON [Concomitant]
     Active Substance: CHLORPHENIRAMINE MALEATE
     Indication: PROPHYLAXIS
     Route: 042
     Dates: start: 20111128
  28. BRONCOVALEAS [Concomitant]
     Active Substance: ALBUTEROL
     Indication: BRONCHITIS
     Route: 055
     Dates: start: 20130310, end: 20130310
  29. CARFILZOMIB [Suspect]
     Active Substance: CARFILZOMIB
     Dosage: FREQUENCY: 6 EVERY 28 DAYS; FREQ. TEXT: DAYS 1, 2, 8, 9, 15, 16 EVERY 28 DAYS
     Route: 042
     Dates: start: 20120907, end: 20120907
  30. BACTRIM [Concomitant]
     Active Substance: SULFAMETHOXAZOLE\TRIMETHOPRIM
     Indication: ANTIBIOTIC PROPHYLAXIS
     Dosage: DAILY DOSE: 800+160 MG?
     Route: 048
     Dates: start: 20111205
  31. CARDIOASPIRIN [Concomitant]
     Active Substance: ASPIRIN
     Indication: ANTICOAGULANT THERAPY
  32. DISSENTEN [Concomitant]
     Active Substance: LOPERAMIDE HYDROCHLORIDE
     Indication: PROPHYLAXIS
     Route: 048
     Dates: start: 20111125
  33. NEXIUM [Concomitant]
     Active Substance: ESOMEPRAZOLE MAGNESIUM
     Route: 048
     Dates: start: 20120913
  34. SOLDESAM [Concomitant]
     Active Substance: DEXAMETHASONE
     Indication: PROPHYLAXIS
     Route: 042
     Dates: start: 20111129
  35. SALINE SOLUTION + KCL [Concomitant]
     Indication: HYPOKALAEMIA
     Dosage: DAILY DOSE: 500+20MEQ ML?
     Route: 042
     Dates: start: 20130228, end: 20130228
  36. CARFILZOMIB [Suspect]
     Active Substance: CARFILZOMIB
     Dosage: FREQUENCY: 4 EVERY 28 DAYS; FREQ. TEXT: DAYS 1, 2, 15, 16 EVERY 28 DAYS
     Route: 042
     Dates: start: 20121031, end: 20121102
  37. CARFILZOMIB [Suspect]
     Active Substance: CARFILZOMIB
     Dosage: FREQUENCY: 4 EVERY 28 DAYS; FREQ. TEXT: DAYS 1, 2, 15, 16 EVERY 28 DAYS
     Route: 042
     Dates: start: 20130109, end: 20130110
  38. LENALIDOMIDE [Suspect]
     Active Substance: LENALIDOMIDE
     Dosage: FREQUENCY: 21 EVERY 28 DAYS; FREQ. TEXT: DAYS 1-21, EVERY 28 DAYS
     Route: 048
     Dates: start: 20111203, end: 20111205
  39. LENALIDOMIDE [Suspect]
     Active Substance: LENALIDOMIDE
     Dosage: FREQUENCY: 21 EVERY 28 DAYS; FREQ. TEXT: DAYS 1-21, EVERY 28 DAYS
     Route: 048
     Dates: start: 20120424, end: 20120508
  40. LENALIDOMIDE [Suspect]
     Active Substance: LENALIDOMIDE
     Dosage: FREQUENCY: 21 EVERY 28 DAYS; FREQ. TEXT: DAYS 1-21, EVERY 28 DAYS
     Route: 048
     Dates: start: 20120921, end: 20121107
  41. MOVICOL [Concomitant]
     Active Substance: POLYETHYLENE GLYCOL 3350\POTASSIUM CHLORIDE\SODIUM BICARBONATE\SODIUM CHLORIDE
     Indication: CONSTIPATION
     Route: 048
     Dates: start: 20130109
  42. NEXIUM [Concomitant]
     Active Substance: ESOMEPRAZOLE MAGNESIUM
     Indication: PROPHYLAXIS
  43. PURSENNID [Concomitant]
     Active Substance: SENNOSIDES A AND B
     Indication: PROPHYLAXIS
     Route: 048
     Dates: start: 20120221
  44. CARFILZOMIB [Suspect]
     Active Substance: CARFILZOMIB
     Indication: PLASMA CELL MYELOMA
     Dosage: FREQ. TEXT: DAYS 1, 2
     Route: 042
     Dates: start: 20111128, end: 20111129
  45. CARFILZOMIB [Suspect]
     Active Substance: CARFILZOMIB
     Dosage: FREQUENCY: 4 EVERY 21 DAYS; FREQ. TEXT: DAYS 8, 9, 15, 16
     Route: 042
     Dates: start: 20111205, end: 20111213
  46. LENALIDOMIDE [Suspect]
     Active Substance: LENALIDOMIDE
     Indication: PLASMA CELL MYELOMA
     Dosage: FREQUENCY: 21 EVERY 28 DAYS; FREQ. TEXT: DAYS 1-21, EVERY 28 DAYS
     Route: 048
     Dates: start: 20111129, end: 20111201
  47. LENALIDOMIDE [Suspect]
     Active Substance: LENALIDOMIDE
     Dosage: FREQUENCY: 21 EVERY 28 DAYS; FREQ. TEXT: DAYS 1-21, EVERY 28 DAYS
     Route: 048
     Dates: start: 20130214, end: 20130227
  48. AUGMENTIN [Concomitant]
     Active Substance: AMOXICILLIN\CLAVULANATE POTASSIUM
     Indication: BRONCHITIS
     Route: 048
     Dates: start: 20130228, end: 20130305
  49. CACIT D3 [Concomitant]
     Active Substance: CALCIUM\CHOLECALCIFEROL
     Indication: PROPHYLAXIS
     Dosage: DAILY DOSE: SACHET?
     Route: 048
     Dates: start: 20130131, end: 20130221
  50. CARDIOASPIRIN [Concomitant]
     Active Substance: ASPIRIN
     Route: 048
     Dates: start: 20120829
  51. LAEVOLAC [Concomitant]
     Active Substance: LACTULOSE
     Indication: PROPHYLAXIS
     Route: 048
     Dates: start: 20120221
  52. MACROGOL [Concomitant]
     Active Substance: POLYETHYLENE GLYCOLS
     Indication: CONSTIPATION
     Route: 048
     Dates: start: 20121107
  53. TANTUM VERDE [Concomitant]
     Active Substance: BENZYDAMINE HYDROCHLORIDE
     Indication: PROPHYLAXIS
     Route: 048
     Dates: start: 20120207
  54. VALACICLOVIR [Concomitant]
     Active Substance: VALACYCLOVIR HYDROCHLORIDE
     Indication: ANTIVIRAL PROPHYLAXIS
     Route: 048
     Dates: start: 20111127
  55. ZOMETA [Concomitant]
     Active Substance: ZOLEDRONIC ACID
     Indication: PROPHYLAXIS
     Route: 042
     Dates: start: 20091006
  56. CLENIL [Concomitant]
     Active Substance: BECLOMETHASONE DIPROPIONATE
     Indication: BRONCHITIS
     Dosage: DAILY DOSE: VIAL?
     Route: 055
     Dates: start: 20130310, end: 20130310
  57. CARFILZOMIB [Suspect]
     Active Substance: CARFILZOMIB
     Dosage: FREQUENCY: 6 EVERY 28 DAYS; FREQ. TEXT: DAYS 1, 2, 8, 9, 15, 16 EVERY 28 DAYS
     Route: 042
     Dates: start: 20120920, end: 20121019
  58. DEXAMETHASONE. [Suspect]
     Active Substance: DEXAMETHASONE
     Indication: PLASMA CELL MYELOMA
     Dosage: FREQUENCY: 4 EVERY 28 DAYS; FREQ. TEXT: DAYS 1, 8, 15, 22, EVERY 28 DAYS
     Route: 065
     Dates: start: 20111129, end: 20111213
  59. DEXAMETHASONE. [Suspect]
     Active Substance: DEXAMETHASONE
     Dosage: FREQUENCY: 4 EVERY 28 DAYS; FREQ. TEXT: DAYS 1, 8, 15, 22, EVERY 28 DAYS
     Route: 065
     Dates: start: 20120517, end: 20120906
  60. MOVICOL [Concomitant]
     Active Substance: POLYETHYLENE GLYCOL 3350\POTASSIUM CHLORIDE\SODIUM BICARBONATE\SODIUM CHLORIDE
     Indication: PROPHYLAXIS
     Route: 048
     Dates: start: 20130109
  61. MYCOSTATIN [Concomitant]
     Active Substance: NYSTATIN
     Indication: ANTIFUNGAL PROPHYLAXIS
     Route: 048
     Dates: start: 20120207
  62. ZYLORIC [Concomitant]
     Active Substance: ALLOPURINOL
     Indication: PROPHYLAXIS
     Route: 048
     Dates: start: 20111127
  63. CLEXANE [Concomitant]
     Active Substance: ENOXAPARIN SODIUM
     Indication: BRONCHITIS
     Route: 058
     Dates: start: 20130310, end: 20130310

REACTIONS (1)
  - Chronic obstructive pulmonary disease [Recovered/Resolved]

NARRATIVE: CASE EVENT DATE: 20130311
